FAERS Safety Report 5003361-8 (Version None)
Quarter: 2006Q2

REPORT INFORMATION
  Report Type: 
  Country: None (occurrence: None)
  Receive Date: 20060511
  Receipt Date: 20060504
  Transmission Date: 20061013
  Serious: Yes (Hospitalization)
  Sender: FDA-Public Use
  Company Number: HQWYE182204MAY06

PATIENT
  Age: 66 Year
  Sex: Male

DRUGS (5)
  1. CORDARONE [Suspect]
     Indication: ARRHYTHMIA
     Dosage: 200 MG TABLET
     Route: 048
     Dates: start: 20020101
  2. CORDARONE [Suspect]
     Indication: ATRIAL FIBRILLATION
     Dosage: 200 MG TABLET
     Route: 048
     Dates: start: 20020101
  3. COMBIVIR [Concomitant]
  4. REYATAZ [Concomitant]
  5. NORVIR [Concomitant]

REACTIONS (3)
  - HAEMOGLOBIN DECREASED [None]
  - HYPERTHYROIDISM [None]
  - LUNG DISORDER [None]
